FAERS Safety Report 10563433 (Version 2)
Quarter: 2015Q3

REPORT INFORMATION
  Report Type: Spontaneous
  Country: US (occurrence: US)
  Receive Date: 20141104
  Receipt Date: 20150706
  Transmission Date: 20151125
  Serious: No
  Sender: FDA-Public Use
  Company Number: US-PFIZER INC-2014302410

PATIENT
  Age: 12 Year
  Sex: Female
  Weight: 29 kg

DRUGS (8)
  1. ETHOSUXIMIDE. [Suspect]
     Active Substance: ETHOSUXIMIDE
     Dosage: 7 ML, UNK
  2. ETHOSUXIMIDE. [Suspect]
     Active Substance: ETHOSUXIMIDE
     Indication: EPILEPSY
     Dosage: 2 ML, 2X/DAY
     Route: 048
     Dates: start: 201410
  3. ETHOSUXIMIDE. [Suspect]
     Active Substance: ETHOSUXIMIDE
     Dosage: 8 ML, UNK
  4. ETHOSUXIMIDE. [Suspect]
     Active Substance: ETHOSUXIMIDE
     Dosage: 6 ML, UNK
  5. ETHOSUXIMIDE. [Suspect]
     Active Substance: ETHOSUXIMIDE
     Dosage: 9 ML, UNK
  6. ETHOSUXIMIDE. [Suspect]
     Active Substance: ETHOSUXIMIDE
     Dosage: 10 ML, 2X/DAY
     Dates: start: 201506
  7. ETHOSUXIMIDE. [Suspect]
     Active Substance: ETHOSUXIMIDE
     Indication: PETIT MAL EPILEPSY
     Dosage: 5 ML, 2X/DAY
     Route: 048
     Dates: start: 201410
  8. AZO-DYE [Suspect]
     Active Substance: UNSPECIFIED INGREDIENT
     Dosage: UNK

REACTIONS (1)
  - Attention deficit/hyperactivity disorder [Not Recovered/Not Resolved]

NARRATIVE: CASE EVENT DATE: 201410
